FAERS Safety Report 7331455-0 (Version None)
Quarter: 2011Q1

REPORT INFORMATION
  Report Type: 
  Country: None (occurrence: None)
  Receive Date: 20110228
  Receipt Date: 20110228
  Transmission Date: 20110831
  Serious: Yes (Other)
  Sender: FDA-Public Use
  Company Number: None

PATIENT
  Age: 64 Year
  Sex: Male
  Weight: 83.4619 kg

DRUGS (2)
  1. LAMOTRIGINE [Suspect]
     Indication: MID-LIFE CRISIS
     Dosage: 200 MG 2 X A NIGHT SEVERAL YEARS
  2. LAMOTRIGINE [Suspect]
     Indication: BIPOLAR DISORDER
     Dosage: 200 MG 2 X A NIGHT SEVERAL YEARS

REACTIONS (3)
  - MOOD ALTERED [None]
  - SUICIDAL IDEATION [None]
  - DRUG INEFFECTIVE [None]
